FAERS Safety Report 11981008 (Version 2)
Quarter: 2016Q1

REPORT INFORMATION
  Report Type: Report from Study
  Country: IT (occurrence: IT)
  Receive Date: 20160129
  Receipt Date: 20160314
  Transmission Date: 20160526
  Serious: Yes (Other)
  Sender: FDA-Public Use
  Company Number: PHHY2015IT156490

PATIENT
  Age: 53 Year
  Sex: Female
  Weight: 52.1 kg

DRUGS (5)
  1. AMLODIPINE [Concomitant]
     Active Substance: AMLODIPINE BESYLATE
     Indication: HYPERTENSION
     Route: 065
  2. OLMESARTAN [Concomitant]
     Active Substance: OLMESARTAN
     Indication: HYPERTENSION
     Route: 065
  3. EVEROLIMUS [Suspect]
     Active Substance: EVEROLIMUS
     Indication: ANGIOMYOLIPOMA
     Dosage: 5 MG, QD
     Route: 048
     Dates: start: 20150129, end: 20151111
  4. EVEROLIMUS [Suspect]
     Active Substance: EVEROLIMUS
     Indication: LYMPHANGIOLEIOMYOMATOSIS
     Dosage: 5 MG, QD
     Route: 048
     Dates: start: 20151221
  5. BIVIS [Concomitant]
     Active Substance: AMLODIPINE BESYLATE\OLMESARTAN MEDOXOMIL
     Indication: HYPERTENSION
     Dosage: 20 MG/5 MG
     Route: 065
     Dates: start: 201503

REACTIONS (2)
  - Neuropathy peripheral [Recovered/Resolved with Sequelae]
  - Nerve compression [Recovered/Resolved with Sequelae]

NARRATIVE: CASE EVENT DATE: 20150823
